FAERS Safety Report 9746412 (Version 3)
Quarter: 2014Q2

REPORT INFORMATION
  Report Type: Other
  Country: US (occurrence: US)
  Receive Date: 20131211
  Receipt Date: 20140630
  Transmission Date: 20141212
  Serious: Yes (Disabling, Other)
  Sender: FDA-Public Use
  Company Number: US-ACORDA-ACO_34460_2013

PATIENT
  Sex: Male
  Weight: 86.17 kg

DRUGS (8)
  1. AMPYRA [Suspect]
     Indication: GAIT DISTURBANCE
     Dosage: 10 MG, BID
     Route: 048
     Dates: start: 2011
  2. AMPYRA [Suspect]
     Indication: BALANCE DISORDER
     Dosage: 10 MG, BID
     Route: 048
     Dates: start: 20120919, end: 2013
  3. AMPYRA [Suspect]
     Dosage: 10 MG, BID
     Route: 048
     Dates: start: 2013, end: 201311
  4. FLUOXETINE [Concomitant]
     Indication: PRODUCT USED FOR UNKNOWN INDICATION
     Dosage: 10 MG, BID
     Route: 065
  5. BUPROPION [Concomitant]
     Indication: PRODUCT USED FOR UNKNOWN INDICATION
     Dosage: UNK,UNK
     Route: 065
  6. ASPIRIN [Concomitant]
     Indication: PRODUCT USED FOR UNKNOWN INDICATION
     Dosage: 325 MG, UNK
     Route: 065
  7. SIMVASTATIN [Concomitant]
     Indication: PRODUCT USED FOR UNKNOWN INDICATION
     Dosage: UNK,UNK
     Route: 065
  8. NITROGLYCERIN [Concomitant]
     Indication: PRODUCT USED FOR UNKNOWN INDICATION
     Dosage: UNK,UNK
     Route: 060

REACTIONS (14)
  - Blindness [Not Recovered/Not Resolved]
  - Concussion [Unknown]
  - Head injury [Unknown]
  - Fractured coccyx [Unknown]
  - Musculoskeletal disorder [Recovered/Resolved]
  - Fall [Unknown]
  - Mobility decreased [Unknown]
  - Dysgraphia [Not Recovered/Not Resolved]
  - Spinal column injury [Unknown]
  - Wound [Unknown]
  - Rib fracture [Unknown]
  - Tremor [Not Recovered/Not Resolved]
  - Back pain [Unknown]
  - Balance disorder [Unknown]
